FAERS Safety Report 21791243 (Version 1)
Quarter: 2022Q4

REPORT INFORMATION
  Report Type: Spontaneous
  Country: US (occurrence: None)
  Receive Date: 20221227
  Receipt Date: 20221227
  Transmission Date: 20230112
  Serious: Yes (Hospitalization)
  Sender: FDA-Public Use
  Company Number: None

PATIENT
  Age: 77 Year
  Sex: Male

DRUGS (24)
  1. REPATHA [Suspect]
     Active Substance: EVOLOCUMAB
     Indication: Hyperlipidaemia
     Route: 058
     Dates: start: 20220308
  2. ASPIRIN [Concomitant]
  3. AZELASTINE DRO [Concomitant]
  4. AZELASTINE SPR [Concomitant]
  5. CRESTOR TAB [Concomitant]
  6. ELIQUIS [Concomitant]
     Active Substance: APIXABAN
  7. FAMOTIDINE TAB [Concomitant]
  8. FERROUS SULF TAB [Concomitant]
  9. FINASTERIDE [Concomitant]
     Active Substance: FINASTERIDE
  10. FLUOXETINE TAB [Concomitant]
  11. ISOSORBIDE DINITRATE [Concomitant]
     Active Substance: ISOSORBIDE DINITRATE
  12. LANTUS INJ [Concomitant]
  13. LEVALBUTEROL AER [Concomitant]
  14. LOMOTIL TAB [Concomitant]
  15. NYSTATIN POW 10000 [Concomitant]
  16. OFEV CAP [Concomitant]
  17. OZEMPIC [Concomitant]
     Active Substance: SEMAGLUTIDE
  18. SILODOSIN CAP [Concomitant]
  19. SODIUM BICAR TAB [Concomitant]
  20. SOTALOL HCL TAB [Concomitant]
  21. SYNTHROID TAB [Concomitant]
  22. TYLENOL 8 HR [Concomitant]
  23. VITAMIN B12 [Concomitant]
     Active Substance: CYANOCOBALAMIN
  24. ZETIA [Concomitant]
     Active Substance: EZETIMIBE

REACTIONS (1)
  - Hospitalisation [None]

NARRATIVE: CASE EVENT DATE: 20221205
